FAERS Safety Report 4912647-4 (Version None)
Quarter: 2006Q1

REPORT INFORMATION
  Report Type: 
  Country: None (occurrence: None)
  Receive Date: 20060215
  Receipt Date: 20060104
  Transmission Date: 20060701
  Serious: Yes (Hospitalization, Disabling, Other)
  Sender: FDA-Public Use
  Company Number: US-MERCK-0601USA00659

PATIENT
  Age: 52 Year
  Sex: Male
  Weight: 130 kg

DRUGS (6)
  1. VIOXX [Suspect]
     Indication: BACK PAIN
     Route: 048
     Dates: start: 20001202
  2. VIOXX [Suspect]
     Route: 048
     Dates: start: 20020501, end: 20030601
  3. VIOXX [Suspect]
     Indication: RADICULAR SYNDROME
     Route: 048
     Dates: start: 20001202
  4. VIOXX [Suspect]
     Route: 048
     Dates: start: 20020501, end: 20030601
  5. TYLENOL (CAPLET) [Concomitant]
     Indication: HEADACHE
     Route: 065
  6. ADVIL [Concomitant]
     Indication: HEADACHE
     Route: 065

REACTIONS (26)
  - AMNESIA [None]
  - ANTIPHOSPHOLIPID SYNDROME [None]
  - ANXIETY [None]
  - BACK INJURY [None]
  - CEREBROVASCULAR ACCIDENT [None]
  - COGNITIVE DISORDER [None]
  - DEAFNESS [None]
  - DEPRESSION [None]
  - DIPLOPIA [None]
  - DIVERTICULITIS [None]
  - DIZZINESS [None]
  - ENCEPHALITIS [None]
  - EPICONDYLITIS [None]
  - FATIGUE [None]
  - HYPERTENSION [None]
  - INSOMNIA [None]
  - JOINT SPRAIN [None]
  - MEMORY IMPAIRMENT [None]
  - MUSCULOSKELETAL PAIN [None]
  - PANIC ATTACK [None]
  - PERSONALITY DISORDER [None]
  - PHARYNGITIS STREPTOCOCCAL [None]
  - POST-TRAUMATIC STRESS DISORDER [None]
  - SINUSITIS [None]
  - STRESS [None]
  - VASCULITIS [None]
